FAERS Safety Report 9944440 (Version 1)
Quarter: 2014Q1

REPORT INFORMATION
  Report Type: Report from Study
  Country: US (occurrence: US)
  Receive Date: 20140303
  Receipt Date: 20140303
  Transmission Date: 20141002
  Serious: No
  Sender: FDA-Public Use
  Company Number: US-ABBVIE-13P-163-1051477-00

PATIENT
  Age: 39 Year
  Sex: Male

DRUGS (3)
  1. HUMIRA [Suspect]
     Indication: PSORIASIS
     Dosage: LOADING DOSE
     Dates: start: 20130208, end: 20130208
  2. HUMIRA [Suspect]
     Dates: start: 20130215
  3. SORIATANE [Concomitant]
     Indication: PRODUCT USED FOR UNKNOWN INDICATION
     Dosage: 25 MG DAILY
     Route: 048

REACTIONS (3)
  - Injection site extravasation [Recovered/Resolved]
  - Injection site discomfort [Recovered/Resolved]
  - Injection site haemorrhage [Recovered/Resolved]
